FAERS Safety Report 9891806 (Version 12)
Quarter: 2015Q1

REPORT INFORMATION
  Report Type: Spontaneous
  Country: HU (occurrence: HU)
  Receive Date: 20140212
  Receipt Date: 20150127
  Transmission Date: 20150721
  Serious: Yes (Hospitalization, Other)
  Sender: FDA-Public Use
  Company Number: HU-PFIZER INC-2014038265

PATIENT
  Age: 65 Year
  Sex: Male

DRUGS (7)
  1. SUTENT [Suspect]
     Active Substance: SUNITINIB MALATE
     Dosage: 50 MG, DAILY, CYCLIC (2 DAYS TAKING A DAILY 50 MG, 1 DAY BREAK)
     Route: 048
     Dates: start: 20140731
  2. SUTENT [Suspect]
     Active Substance: SUNITINIB MALATE
     Indication: RENAL CANCER METASTATIC
     Dosage: 50 MG, 1X/DAY CYCLIC
     Route: 048
     Dates: start: 20140110, end: 20140206
  3. DOXAZOSIN SANDOZ URO RETARD [Suspect]
     Active Substance: DOXAZOSIN MESYLATE
     Indication: BLOOD PRESSURE INCREASED
     Dosage: UNK
     Route: 048
     Dates: start: 20140128
  4. SUTENT [Suspect]
     Active Substance: SUNITINIB MALATE
     Dosage: 50 MG, DAILY CYCLIC (2ND CYCLE)
     Route: 048
     Dates: start: 20140228
  5. SUTENT [Suspect]
     Active Substance: SUNITINIB MALATE
     Dosage: 6TH CYCLE 50 MG, DAILY 2 DAYS TAKING A DAILY 50 MG, 1 DAY BREAK
     Route: 048
     Dates: start: 20141002, end: 20141014
  6. SUTENT [Suspect]
     Active Substance: SUNITINIB MALATE
     Dosage: 50 MG, 1X/DAY
     Route: 048
     Dates: start: 20141020
  7. COVERCARD [Concomitant]
     Active Substance: AMLODIPINE BESYLATE\PERINDOPRIL ARGININE
     Dosage: UNK
     Route: 048
     Dates: start: 201308

REACTIONS (18)
  - Leukopenia [Not Recovered/Not Resolved]
  - Blood creatinine increased [Not Recovered/Not Resolved]
  - Leukopenia [Recovered/Resolved]
  - Blood pressure systolic increased [Recovered/Resolved]
  - Gastrooesophageal reflux disease [Not Recovered/Not Resolved]
  - Dysgeusia [Recovered/Resolved]
  - Pruritus [Recovered/Resolved]
  - Lip swelling [Recovered/Resolved]
  - Anaemia [Not Recovered/Not Resolved]
  - Nausea [Not Recovered/Not Resolved]
  - Blood urea increased [Not Recovered/Not Resolved]
  - Rash [Recovered/Resolved]
  - Leukopenia [Recovered/Resolved]
  - Erythema [Recovered/Resolved]
  - Lip swelling [Recovered/Resolved]
  - Periorbital oedema [Recovered/Resolved]
  - Hypersensitivity [Recovered/Resolved]
  - Dyspepsia [Recovered/Resolved]

NARRATIVE: CASE EVENT DATE: 2014
